FAERS Safety Report 5878307-0 (Version None)
Quarter: 2008Q3

REPORT INFORMATION
  Report Type: 
  Country: None (occurrence: None)
  Receive Date: 20080911
  Receipt Date: 20080903
  Transmission Date: 20090109
  Serious: Yes (Other)
  Sender: FDA-Public Use
  Company Number: US-PFIZER INC-2008074109

PATIENT
  Sex: Female
  Weight: 53.1 kg

DRUGS (4)
  1. LIPITOR [Suspect]
     Indication: BLOOD CHOLESTEROL INCREASED
  2. EFFEXOR [Suspect]
     Indication: PANIC ATTACK
     Dates: start: 20050101, end: 20080101
  3. EFFEXOR [Suspect]
     Indication: MOOD SWINGS
  4. ANTIHISTAMINES [Concomitant]

REACTIONS (9)
  - BLOOD CHOLESTEROL INCREASED [None]
  - BURNING SENSATION [None]
  - ECZEMA [None]
  - EYE IRRITATION [None]
  - EYE SWELLING [None]
  - ILL-DEFINED DISORDER [None]
  - MENOPAUSE [None]
  - SKIN DISORDER [None]
  - SKIN FISSURES [None]
